FAERS Safety Report 4991382-0 (Version None)
Quarter: 2006Q2

REPORT INFORMATION
  Report Type: 
  Country: None (occurrence: None)
  Receive Date: 20060428
  Receipt Date: 20060410
  Transmission Date: 20061013
  Serious: Yes (Other)
  Sender: FDA-Public Use
  Company Number: US200604001518

PATIENT
  Age: 58 Year
  Sex: Female
  Weight: 88.4 kg

DRUGS (4)
  1. HUMULIN 70/30 [Suspect]
     Dosage: SEE IMAGE
     Dates: start: 19930101
  2. HUMULIN R [Suspect]
     Dosage: AS NEEDED
     Dates: start: 19930101
  3. HUMULIN N [Suspect]
     Dates: start: 20060409, end: 20060409
  4. ASPIRIN [Suspect]

REACTIONS (8)
  - BIPOLAR DISORDER [None]
  - BLOOD GLUCOSE INCREASED [None]
  - DRUG DISPENSING ERROR [None]
  - FALL [None]
  - FOOT FRACTURE [None]
  - INSOMNIA [None]
  - MUSCLE SPASMS [None]
  - OSTEOPOROSIS [None]
